FAERS Safety Report 10452954 (Version 1)
Quarter: 2014Q3

REPORT INFORMATION
  Report Type: Spontaneous
  Country: US (occurrence: None)
  Receive Date: 20140912
  Receipt Date: 20140912
  Transmission Date: 20150326
  Serious: Yes (Death, Hospitalization)
  Sender: FDA-Public Use
  Company Number: None

PATIENT
  Age: 73 Year
  Sex: Female
  Weight: 113 kg

DRUGS (1)
  1. DEPAKOTE [Suspect]
     Active Substance: DIVALPROEX SODIUM
     Indication: SCHIZOAFFECTIVE DISORDER
     Dosage: 250 MG=2X125MG CP PO   THREE TIMES DAILY TAKEN BY MOUTH
     Route: 048
     Dates: start: 20140707, end: 20140710

REACTIONS (3)
  - Off label use [None]
  - Sudden death [None]
  - Hypertensive heart disease [None]

NARRATIVE: CASE EVENT DATE: 20140710
